FAERS Safety Report 22215262 (Version 1)
Quarter: 2023Q2

REPORT INFORMATION
  Report Type: Spontaneous
  Country: US (occurrence: US)
  Receive Date: 20230415
  Receipt Date: 20230415
  Transmission Date: 20230721
  Serious: No
  Sender: FDA-Public Use
  Company Number: US-JNJFOC-20191228027

PATIENT
  Age: 58 Year
  Sex: Male
  Weight: 118.04 kg

DRUGS (1)
  1. IMODIUM MULTI-SYMPTOM RELIEF [Suspect]
     Active Substance: DIMETHICONE\LOPERAMIDE HYDROCHLORIDE
     Indication: Flatulence
     Dosage: 1 CAPLET ONCE A DAY
     Route: 048
     Dates: start: 20191215, end: 20191215

REACTIONS (1)
  - Burning sensation [Recovered/Resolved]
